FAERS Safety Report 14836862 (Version 1)
Quarter: 2018Q2

REPORT INFORMATION
  Report Type: Spontaneous
  Country: US (occurrence: US)
  Receive Date: 20180420
  Receipt Date: 20180420
  Transmission Date: 20180711
  Serious: No
  Sender: FDA-Public Use
  Company Number: None

PATIENT
  Age: 12 Year
  Sex: Male

DRUGS (1)
  1. LUPRON DEPOT-PED [Suspect]
     Active Substance: LEUPROLIDE ACETATE
     Indication: GENDER DYSPHORIA
     Dosage: 30MG EVERY 3 MONTHS INTRAMUSCULAR
     Route: 030
     Dates: start: 20180124

REACTIONS (4)
  - Irritability [None]
  - Agitation [None]
  - Depression [None]
  - Unevaluable event [None]

NARRATIVE: CASE EVENT DATE: 20180401
